FAERS Safety Report 6044284-5 (Version None)
Quarter: 2009Q1

REPORT INFORMATION
  Report Type: 
  Country: None (occurrence: None)
  Receive Date: 20090120
  Receipt Date: 20090109
  Transmission Date: 20090719
  Serious: Yes (Other)
  Sender: FDA-Public Use
  Company Number: PT-CELGENEUS-130-20785-09010365

PATIENT
  Age: 40 Year
  Sex: Female

DRUGS (7)
  1. THALIDOMIDE [Suspect]
     Route: 048
     Dates: start: 20081101, end: 20081106
  2. THALIDOMIDE [Suspect]
     Route: 048
     Dates: end: 20080101
  3. GYNERA [Concomitant]
     Indication: CONTRACEPTION
     Route: 048
     Dates: start: 20080901
  4. MEDROXIPROGESTERONE [Concomitant]
     Indication: PREMATURE MENOPAUSE
     Route: 065
     Dates: start: 20070101
  5. MEDROXIPROGESTERONE [Concomitant]
     Indication: HORMONE REPLACEMENT THERAPY
  6. ESTRADIOL VALERATE [Concomitant]
     Indication: PREMATURE MENOPAUSE
     Route: 065
     Dates: start: 20070101
  7. ESTRADIOL VALERATE [Concomitant]
     Indication: HORMONE REPLACEMENT THERAPY

REACTIONS (2)
  - PREGNANCY TEST POSITIVE [None]
  - PREGNANCY TEST URINE [None]
